FAERS Safety Report 6979608-5 (Version None)
Quarter: 2010Q3

REPORT INFORMATION
  Report Type: 
  Country: None (occurrence: None)
  Receive Date: 20100910
  Receipt Date: 20100910
  Transmission Date: 20110219
  Serious: Yes (Hospitalization)
  Sender: FDA-Public Use
  Company Number: None

PATIENT
  Sex: Male
  Weight: 130 kg

DRUGS (3)
  1. FLUOROURACIL [Suspect]
     Dosage: 3216 MG
     Dates: end: 20100818
  2. BEVACIZUMAB (RHUMAB VEGF) [Suspect]
     Dosage: 295 MG
     Dates: end: 20100818
  3. LEUCOVORIN CALCIUM [Suspect]
     Dosage: 688 MG
     Dates: end: 20100818

REACTIONS (4)
  - ABDOMINAL PAIN [None]
  - DEHYDRATION [None]
  - HAEMATURIA [None]
  - UPPER GASTROINTESTINAL HAEMORRHAGE [None]
